FAERS Safety Report 6410638-8 (Version None)
Quarter: 2009Q4

REPORT INFORMATION
  Report Type: 
  Country: None (occurrence: None)
  Receive Date: 20091022
  Receipt Date: 20091014
  Transmission Date: 20100525
  Serious: Yes (Other)
  Sender: FDA-Public Use
  Company Number: US-BIOGENIDEC-2008BI024825

PATIENT
  Age: 35 Year
  Sex: Female

DRUGS (5)
  1. TYSABRI [Suspect]
     Indication: MULTIPLE SCLEROSIS
     Route: 042
     Dates: start: 20050207, end: 20050207
  2. TYSABRI [Suspect]
     Route: 042
     Dates: start: 20071203, end: 20080620
  3. TYSABRI [Suspect]
     Route: 042
     Dates: start: 20090422
  4. XANAX [Concomitant]
  5. CELEXA [Concomitant]

REACTIONS (3)
  - ARTHRALGIA [None]
  - BREAST CANCER [None]
  - MIGRAINE [None]
